FAERS Safety Report 16340896 (Version 1)
Quarter: 2019Q2

REPORT INFORMATION
  Report Type: Spontaneous
  Country: CA (occurrence: CA)
  Receive Date: 20190522
  Receipt Date: 20190522
  Transmission Date: 20190711
  Serious: Yes (Life-Threatening, Hospitalization, Other)
  Sender: FDA-Public Use
  Company Number: CA-AUROBINDO-AUR-APL-2019-027610

PATIENT

DRUGS (5)
  1. APO TRAMADOL/PARACETAMOL [Suspect]
     Active Substance: ACETAMINOPHEN\TRAMADOL
     Indication: POSTOPERATIVE ANALGESIA
     Dosage: 2.0 DOSAGE FORM, AS REQUIRED
     Route: 048
  2. BUPROPION. [Suspect]
     Active Substance: BUPROPION
     Indication: PRODUCT USED FOR UNKNOWN INDICATION
     Dosage: 100.0 MILLIGRAM, DAILY
     Route: 048
  3. SERTRALINE [Suspect]
     Active Substance: SERTRALINE HYDROCHLORIDE
     Indication: PRODUCT USED FOR UNKNOWN INDICATION
     Dosage: 100.0 MILLIGRAM, TWO TIMES A DAY
     Route: 048
  4. PRAZOSIN. [Suspect]
     Active Substance: PRAZOSIN
     Indication: POST-TRAUMATIC STRESS DISORDER
     Dosage: 6.0 MILLIGRAM, DAILY
     Route: 048
  5. BUPROPION. [Suspect]
     Active Substance: BUPROPION
     Dosage: 150.0 MILLIGRAM, DAILY
     Route: 048

REACTIONS (7)
  - Hallucination [Unknown]
  - Mechanical ventilation [Unknown]
  - Vomiting [Unknown]
  - Aspiration [Unknown]
  - Anxiety [Unknown]
  - Serotonin syndrome [Unknown]
  - Acute respiratory distress syndrome [Unknown]
